FAERS Safety Report 4427852-3 (Version None)
Quarter: 2004Q3

REPORT INFORMATION
  Report Type: 
  Country: None (occurrence: None)
  Receive Date: 20040812
  Receipt Date: 20040728
  Transmission Date: 20050211
  Serious: Yes (Hospitalization)
  Sender: FDA-Public Use
  Company Number: 2004AP03971

PATIENT
  Age: 60 Year
  Sex: Female
  Weight: 45.9 kg

DRUGS (7)
  1. DIPRIVAN [Suspect]
     Indication: INDUCTION OF ANAESTHESIA
     Dosage: 100 MG, DAILY, INTRAVENOUS
     Route: 042
     Dates: start: 20040716, end: 20040716
  2. SEVOFRANE [Concomitant]
  3. PERDIPINE [Concomitant]
  4. VECURONIUM BROMIDE [Concomitant]
  5. ATROPINE SULFATE [Concomitant]
  6. VAGOSTIGMIN [Concomitant]
  7. LAUGHING GAS [Concomitant]

REACTIONS (7)
  - ASPARTATE AMINOTRANSFERASE INCREASED [None]
  - BLOOD CREATINE PHOSPHOKINASE INCREASED [None]
  - BLOOD LACTATE DEHYDROGENASE INCREASED [None]
  - HAEMATURIA [None]
  - HAEMOLYSIS [None]
  - HYPERSENSITIVITY [None]
  - INJECTION SITE ERYTHEMA [None]
